FAERS Safety Report 8962886 (Version 1)
Quarter: 2012Q4

REPORT INFORMATION
  Report Type: 
  Country: CA (occurrence: CA)
  Receive Date: 20121213
  Receipt Date: 20121213
  Transmission Date: 20130627
  Serious: Yes (Hospitalization, Other)
  Sender: FDA-Public Use
  Company Number: CA-ROCHE-1168496

PATIENT
  Age: 26 None
  Sex: Male

DRUGS (5)
  1. XOLAIR [Suspect]
     Indication: ASTHMA
     Dosage: 300 mg, 1/Month
     Route: 058
     Dates: start: 20061109
  2. XOLAIR [Suspect]
     Dosage: UNK
     Route: 058
     Dates: start: 20110224
  3. XOLAIR [Suspect]
     Route: 058
     Dates: start: 20120214
  4. PREDNISONE [Concomitant]
     Indication: PRODUCT USED FOR UNKNOWN INDICATION
  5. VENTOLIN [Concomitant]
     Dosage: 2 puffs 4 times a day.
     Route: 065

REACTIONS (18)
  - Lower respiratory tract infection viral [Unknown]
  - Hypersensitivity [Unknown]
  - Road traffic accident [Unknown]
  - Nasopharyngitis [Unknown]
  - Limb discomfort [Unknown]
  - Dyspnoea [Unknown]
  - Oropharyngeal pain [Unknown]
  - Sinus headache [Unknown]
  - Sinus disorder [Unknown]
  - Injection site reaction [Unknown]
  - Seasonal allergy [Unknown]
  - Cough [Unknown]
  - Heart rate increased [Unknown]
  - Chest discomfort [Unknown]
  - Stress [Unknown]
  - General physical health deterioration [Unknown]
  - Blood pressure increased [Unknown]
  - Tachycardia [Unknown]
